FAERS Safety Report 23907723 (Version 9)
Quarter: 2025Q2

REPORT INFORMATION
  Report Type: Spontaneous
  Country: GB (occurrence: GB)
  Receive Date: 20240528
  Receipt Date: 20250617
  Transmission Date: 20250716
  Serious: Yes (Other)
  Sender: ADVANZ PHARMA
  Company Number: GB-MLMSERVICE-20240517-PI059713-00270-2

PATIENT

DRUGS (16)
  1. PREDNISOLONE [Suspect]
     Active Substance: PREDNISOLONE
     Indication: Anti-glomerular basement membrane disease
     Route: 064
  2. CYCLOPHOSPHAMIDE [Suspect]
     Active Substance: CYCLOPHOSPHAMIDE
     Indication: Anti-glomerular basement membrane disease
  3. RITUXIMAB [Suspect]
     Active Substance: RITUXIMAB
     Indication: Anti-glomerular basement membrane disease
  4. METHYLPREDNISOLONE [Suspect]
     Active Substance: METHYLPREDNISOLONE
     Indication: Anti-glomerular basement membrane disease
     Route: 064
  5. METHYLPREDNISOLONE [Suspect]
     Active Substance: METHYLPREDNISOLONE
  6. OXYGEN [Concomitant]
     Active Substance: OXYGEN
     Route: 064
  7. OXYGEN [Concomitant]
     Active Substance: OXYGEN
  8. IRON [Concomitant]
     Active Substance: IRON
     Route: 064
  9. IRON [Concomitant]
     Active Substance: IRON
  10. ACYCLOVIR [Concomitant]
     Active Substance: ACYCLOVIR
     Indication: Prophylaxis
     Route: 064
  11. ACYCLOVIR [Concomitant]
     Active Substance: ACYCLOVIR
  12. TAZOBACTAM [Concomitant]
     Active Substance: TAZOBACTAM
     Indication: Antibiotic therapy
     Route: 064
  13. TAZOBACTAM [Concomitant]
     Active Substance: TAZOBACTAM
  14. VALGANCICLOVIR [Concomitant]
     Active Substance: VALGANCICLOVIR
     Indication: Cytomegalovirus infection reactivation
     Route: 064
  15. VALGANCICLOVIR [Concomitant]
     Active Substance: VALGANCICLOVIR
  16. CEFUROXIME [Concomitant]
     Active Substance: CEFUROXIME

REACTIONS (3)
  - Congenital cytomegalovirus infection [Recovered/Resolved]
  - Deafness neurosensory [Recovered/Resolved]
  - Foetal exposure during pregnancy [Unknown]
